FAERS Safety Report 7482664-1 (Version None)
Quarter: 2011Q2

REPORT INFORMATION
  Report Type: 
  Country: None (occurrence: None)
  Receive Date: 20110516
  Receipt Date: 20110512
  Transmission Date: 20111010
  Serious: Yes (Death, Hospitalization, Other)
  Sender: FDA-Public Use
  Company Number: PHHY2011DE40150

PATIENT
  Sex: Female
  Weight: 43 kg

DRUGS (5)
  1. ZOMETA [Suspect]
     Dosage: 4 MG, EVERY FOUR WEEKS
     Route: 042
     Dates: start: 20110413
  2. LAPATINIB [Suspect]
     Indication: BREAST CANCER
     Dosage: 1250 MG, PER DAY
     Route: 048
  3. CAPECITABINE [Suspect]
     Indication: BREAST CANCER
     Dosage: 1000 MG, PER DAY
     Route: 048
  4. LETROZOLE [Concomitant]
     Indication: ENDOCRINE DISORDER
     Dosage: UNK
     Dates: start: 20100825
  5. ZOMETA [Suspect]
     Indication: METASTASES TO BONE
     Dosage: 4 MG, EVERY FOUR WEEKS
     Route: 042
     Dates: start: 20100825

REACTIONS (7)
  - HYDROCEPHALUS [None]
  - ATAXIA [None]
  - HEADACHE [None]
  - INTRACRANIAL PRESSURE INCREASED [None]
  - DEATH [None]
  - COGNITIVE DISORDER [None]
  - HEPATIC NEOPLASM [None]
